FAERS Safety Report 5348540-5 (Version None)
Quarter: 2007Q2

REPORT INFORMATION
  Report Type: 
  Country: None (occurrence: None)
  Receive Date: 20070605
  Receipt Date: 20070521
  Transmission Date: 20071010
  Serious: Yes (Death, Other)
  Sender: FDA-Public Use
  Company Number: 100#08#2007-01778

PATIENT
  Age: 62 Year
  Sex: Male

DRUGS (2)
  1. TAMOXIFEN CITRATE [Suspect]
     Indication: PERITONEAL DISORDER
     Dosage: 40 MG
     Dates: start: 20040701
  2. PREDNISONE (PREDNISONE) (PREDNISONE) [Concomitant]

REACTIONS (9)
  - CALCIPHYLAXIS [None]
  - GANGRENE [None]
  - GASTROINTESTINAL DISORDER [None]
  - PENILE PAIN [None]
  - PENIS DISORDER [None]
  - REFUSAL OF TREATMENT BY PATIENT [None]
  - REPRODUCTIVE TRACT DISORDER [None]
  - SEMINAL VESICULAR DISORDER [None]
  - URETHRAL DISCHARGE [None]
